FAERS Safety Report 19258130 (Version 2)
Quarter: 2021Q2

REPORT INFORMATION
  Report Type: Spontaneous
  Country: IN (occurrence: IN)
  Receive Date: 20210514
  Receipt Date: 20210520
  Transmission Date: 20210717
  Serious: Yes (Other)
  Sender: FDA-Public Use
  Company Number: IN-CIPLA LTD.-2021IN03489

PATIENT

DRUGS (3)
  1. ASTHALIN [SALBUTAMOL] [Suspect]
     Active Substance: ALBUTEROL
     Dosage: UNK
     Route: 065
  2. ASTHALIN [SALBUTAMOL] [Suspect]
     Active Substance: ALBUTEROL
     Indication: ASTHMA
     Dosage: UNK
     Route: 065
  3. ASTHALIN [SALBUTAMOL] [Suspect]
     Active Substance: ALBUTEROL
     Dosage: UNK
     Route: 065

REACTIONS (2)
  - Adverse event [Unknown]
  - Device malfunction [Unknown]
